FAERS Safety Report 24940089 (Version 2)
Quarter: 2025Q1

REPORT INFORMATION
  Report Type: Spontaneous
  Country: US (occurrence: US)
  Receive Date: 20250207
  Receipt Date: 20250228
  Transmission Date: 20250409
  Serious: No
  Sender: AMGEN
  Company Number: US-AMGEN-USASP2025021764

PATIENT
  Age: 66 Year
  Sex: Female

DRUGS (2)
  1. REPATHA [Suspect]
     Active Substance: EVOLOCUMAB
     Indication: Product used for unknown indication
     Dosage: UNK, Q2WK
     Route: 065
     Dates: start: 20250126
  2. PRAVASTATIN [Concomitant]
     Active Substance: PRAVASTATIN
     Route: 065
     Dates: start: 2007

REACTIONS (7)
  - Drug hypersensitivity [Unknown]
  - Diarrhoea [Unknown]
  - Hunger [Unknown]
  - Dizziness [Unknown]
  - Accidental exposure to product [Unknown]
  - Fear of injection [Unknown]
  - Hypotension [Unknown]

NARRATIVE: CASE EVENT DATE: 20250126
